FAERS Safety Report 7138791-1 (Version None)
Quarter: 2010Q4

REPORT INFORMATION
  Report Type: 
  Country: None (occurrence: None)
  Receive Date: 20101206
  Receipt Date: 20101129
  Transmission Date: 20110411
  Serious: Yes (Other)
  Sender: FDA-Public Use
  Company Number: IE-SANOFI-AVENTIS-2010SA069657

PATIENT
  Age: 49 Year
  Sex: Male
  Weight: 95.8 kg

DRUGS (10)
  1. LANTUS [Suspect]
     Indication: TYPE 2 DIABETES MELLITUS
     Route: 058
     Dates: start: 20090914, end: 20090928
  2. NOVORAPID [Suspect]
     Indication: TYPE 2 DIABETES MELLITUS
     Route: 058
     Dates: start: 20090914, end: 20090928
  3. INSULIN BASAL [Suspect]
     Dates: start: 20090914, end: 20090928
  4. PRAVASTATIN [Concomitant]
     Dates: start: 20090904
  5. METFORMIN [Concomitant]
     Dates: start: 20070918
  6. GLICLAZIDE [Concomitant]
     Dates: start: 20080116, end: 20090913
  7. ASPIRIN [Concomitant]
     Dates: start: 20071128
  8. RAMIPRIL [Concomitant]
     Dates: start: 20071128
  9. FENOFIBRATE [Concomitant]
     Dates: start: 20090904
  10. ACETAMINOPHEN [Concomitant]
     Dates: start: 20080101

REACTIONS (2)
  - ABDOMINAL DISCOMFORT [None]
  - PRURITUS GENERALISED [None]
